FAERS Safety Report 5153908-6 (Version None)
Quarter: 2006Q4

REPORT INFORMATION
  Report Type: 
  Country: None (occurrence: None)
  Receive Date: 20061120
  Receipt Date: 20060907
  Transmission Date: 20070319
  Serious: Yes (Hospitalization)
  Sender: FDA-Public Use
  Company Number: GBWYE874507SEP06

PATIENT
  Sex: Female
  Weight: 45.4 kg

DRUGS (8)
  1. ENBREL [Suspect]
     Indication: RHEUMATOID ARTHRITIS
     Dosage: 50MG WEEKLY
     Route: 058
     Dates: start: 20030201, end: 20060726
  2. ENBREL [Suspect]
     Dosage: 50MG WEEKLY
     Dates: start: 20060101
  3. ACETAMINOPHEN [Concomitant]
     Indication: PAIN
     Route: 048
  4. VITAMIN B-12 [Concomitant]
     Indication: VITAMIN B12 DEFICIENCY
     Route: 048
  5. ADCAL D3 [Concomitant]
     Route: 048
  6. LANSOPRAZOLE [Concomitant]
     Indication: DYSPEPSIA
     Dosage: 30MG FREQUENCY UNKNOWN
     Route: 048
  7. MST [Concomitant]
     Indication: PAIN
     Route: 048
  8. DICLOFENAC SODIUM [Concomitant]
     Indication: PAIN
     Route: 048

REACTIONS (2)
  - HALLUCINATION, AUDITORY [None]
  - MENTAL DISORDER [None]
